FAERS Safety Report 20580889 (Version 3)
Quarter: 2022Q2

REPORT INFORMATION
  Report Type: Spontaneous
  Country: IT (occurrence: IT)
  Receive Date: 20220311
  Receipt Date: 20220401
  Transmission Date: 20220720
  Serious: Yes (Hospitalization)
  Sender: FDA-Public Use
  Company Number: IT-NOVOPROD-897650

PATIENT
  Sex: Female
  Weight: 67 kg

DRUGS (4)
  1. NOVORAPID [Suspect]
     Active Substance: INSULIN ASPART
     Dosage: UNK
     Route: 058
     Dates: start: 20220218
  2. NOVORAPID [Suspect]
     Active Substance: INSULIN ASPART
     Indication: Diabetes mellitus
     Dosage: UNK
     Route: 058
  3. NOVORAPID [Suspect]
     Active Substance: INSULIN ASPART
     Dosage: UNK(CHANGED CARTRIDGE)
     Route: 058
     Dates: start: 20220224
  4. NOVORAPID [Suspect]
     Active Substance: INSULIN ASPART
     Dosage: UNK(CHANGED CARTRIDGE)
     Route: 058

REACTIONS (5)
  - Blood glucose increased [Unknown]
  - Diabetic ketoacidosis [Recovering/Resolving]
  - Product contamination [Unknown]
  - Blood pressure increased [Unknown]
  - Cardiac murmur [Unknown]

NARRATIVE: CASE EVENT DATE: 20220219
